FAERS Safety Report 7734660-4 (Version None)
Quarter: 2011Q3

REPORT INFORMATION
  Report Type: 
  Country: None (occurrence: None)
  Receive Date: 20110901
  Receipt Date: 20110804
  Transmission Date: 20111222
  Serious: Yes (Other)
  Sender: FDA-Public Use
  Company Number: 2011SP036756

PATIENT
  Sex: Female

DRUGS (1)
  1. KEIMAX (CEFTIBUTEN /01166201/) [Suspect]
     Indication: PRODUCT USED FOR UNKNOWN INDICATION
     Dates: start: 20110101, end: 20110101

REACTIONS (5)
  - VISUAL ACUITY REDUCED [None]
  - DIARRHOEA [None]
  - TACHYCARDIA [None]
  - CONVULSION [None]
  - TREMOR [None]
